FAERS Safety Report 22602495 (Version 6)
Quarter: 2024Q4

REPORT INFORMATION
  Report Type: Report from Study
  Country: US (occurrence: US)
  Receive Date: 20230614
  Receipt Date: 20241109
  Transmission Date: 20250115
  Serious: Yes (Hospitalization, Other)
  Sender: ABBVIE
  Company Number: US-ABBVIE-5289454

PATIENT
  Age: 78 Year
  Sex: Female

DRUGS (3)
  1. IMBRUVICA [Suspect]
     Active Substance: IBRUTINIB
     Indication: Chronic lymphocytic leukaemia (in remission)
     Route: 048
     Dates: start: 202201, end: 202201
  2. IMBRUVICA [Suspect]
     Active Substance: IBRUTINIB
     Indication: Chronic lymphocytic leukaemia (in remission)
     Route: 048
     Dates: start: 20220107
  3. IMBRUVICA [Suspect]
     Active Substance: IBRUTINIB
     Indication: Chronic lymphocytic leukaemia (in remission)
     Route: 048
     Dates: start: 2016

REACTIONS (36)
  - Head injury [Unknown]
  - Anger [Unknown]
  - Fall [Recovered/Resolved]
  - Haematological infection [Unknown]
  - Upper limb fracture [Unknown]
  - Chest pain [Unknown]
  - Multiple injuries [Unknown]
  - Haemorrhagic diathesis [Unknown]
  - Illness [Unknown]
  - Feeling abnormal [Unknown]
  - Wound haemorrhage [Unknown]
  - Skin exfoliation [Unknown]
  - Fall [Unknown]
  - Blood pressure fluctuation [Not Recovered/Not Resolved]
  - Blood pressure increased [Unknown]
  - Inflammation [Unknown]
  - Presyncope [Unknown]
  - Skin laceration [Unknown]
  - Blood potassium decreased [Unknown]
  - Scratch [Unknown]
  - Peripheral swelling [Unknown]
  - Pain in extremity [Unknown]
  - Rash [Recovering/Resolving]
  - Chronic lymphocytic leukaemia [Not Recovered/Not Resolved]
  - Face injury [Unknown]
  - Haemorrhage [Unknown]
  - Rib fracture [Unknown]
  - Arthralgia [Recovered/Resolved]
  - Skin cancer [Unknown]
  - Erythema [Unknown]
  - Skin injury [Unknown]
  - Wrist fracture [Unknown]
  - Illness [Unknown]
  - Vitamin D decreased [Unknown]
  - Blood magnesium decreased [Unknown]
  - Musculoskeletal disorder [Unknown]

NARRATIVE: CASE EVENT DATE: 20160101
